FAERS Safety Report 19707498 (Version 1)
Quarter: 2021Q3

REPORT INFORMATION
  Report Type: Spontaneous
  Country: GB (occurrence: GB)
  Receive Date: 20210817
  Receipt Date: 20210817
  Transmission Date: 20211014
  Serious: Yes (Hospitalization)
  Sender: FDA-Public Use
  Company Number: GB-TEVA-2021-GB-1942704

PATIENT
  Sex: Female

DRUGS (4)
  1. UMECLIDINIUM BROMIDE [Concomitant]
     Active Substance: UMECLIDINIUM BROMIDE
     Dosage: 65MICROGRAMS/DOSE
  2. BISOPROLOL [Concomitant]
     Active Substance: BISOPROLOL
     Dosage: 2.5 MILLIGRAM DAILY;
  3. WARFARIN [Suspect]
     Active Substance: WARFARIN
     Dosage: TAKING 4MG DAILY APART FROM FRIDAYS 5MG
     Route: 065
  4. VILANTEROL [Concomitant]
     Active Substance: VILANTEROL TRIFENATATE
     Dosage: 22 MICROGRAM DAILY;  DRY POWDER INHALER,.TO BE INHALED EACH MORNING

REACTIONS (1)
  - Epistaxis [Recovered/Resolved]
